FAERS Safety Report 7745182-9 (Version None)
Quarter: 2011Q3

REPORT INFORMATION
  Report Type: 
  Country: None (occurrence: None)
  Receive Date: 20110907
  Receipt Date: 20110901
  Transmission Date: 20111222
  Serious: Yes (Death)
  Sender: FDA-Public Use
  Company Number: DKLU1072802

PATIENT
  Age: 1 Year
  Sex: Male

DRUGS (2)
  1. SABRIL [Suspect]
     Indication: EPILEPSY
     Dosage: 375 MG MILLIGRAM(S), 2 IN 1 D, ORAL   450 MG MILLIGRAM(S), 2 IN 1 D, ORAL
     Dates: start: 20110101
  2. SABRIL [Suspect]
     Indication: EPILEPSY
     Dosage: 375 MG MILLIGRAM(S), 2 IN 1 D, ORAL   450 MG MILLIGRAM(S), 2 IN 1 D, ORAL
     Dates: start: 20110222

REACTIONS (4)
  - CARDIO-RESPIRATORY ARREST [None]
  - EPILEPSY [None]
  - PNEUMONIA ASPIRATION [None]
  - ENCEPHALOPATHY [None]
